FAERS Safety Report 18055948 (Version 1)
Quarter: 2020Q3

REPORT INFORMATION
  Report Type: Report from Study
  Country: US (occurrence: US)
  Receive Date: 20200722
  Receipt Date: 20200722
  Transmission Date: 20201103
  Serious: Yes (Hospitalization, Other)
  Sender: FDA-Public Use
  Company Number: US-TEVA-2020-US-1802021

PATIENT
  Age: 57 Year
  Sex: Female

DRUGS (1)
  1. COPAXONE [Suspect]
     Active Substance: GLATIRAMER ACETATE
     Indication: MULTIPLE SCLEROSIS
     Route: 058
     Dates: start: 20200215

REACTIONS (14)
  - Urinary retention [Unknown]
  - Pyrexia [Unknown]
  - Cystitis [Unknown]
  - Osteonecrosis [Unknown]
  - Cough [Unknown]
  - Vomiting [Unknown]
  - Injection site pain [Unknown]
  - Depression [Unknown]
  - Anal incontinence [Unknown]
  - Dyspnoea [Unknown]
  - Injection site pain [Unknown]
  - Cold sweat [Unknown]
  - Genital burning sensation [Unknown]
  - Pain in extremity [Unknown]

NARRATIVE: CASE EVENT DATE: 2020
